FAERS Safety Report 10824728 (Version 1)
Quarter: 2015Q1

REPORT INFORMATION
  Report Type: Spontaneous
  Country: US (occurrence: None)
  Receive Date: 20150213
  Receipt Date: 20150213
  Transmission Date: 20150721
  Serious: Yes (Hospitalization)
  Sender: FDA-Public Use
  Company Number: 2014BI109434

PATIENT
  Age: 58 Year
  Sex: Female

DRUGS (1)
  1. AVONEX [Suspect]
     Active Substance: INTERFERON BETA-1A
     Indication: MULTIPLE SCLEROSIS
     Route: 030
     Dates: start: 20000427, end: 20050626

REACTIONS (13)
  - Feeling cold [None]
  - Nausea [None]
  - Hallucination [None]
  - Renal neoplasm [None]
  - Gait disturbance [None]
  - Multiple sclerosis relapse [None]
  - Vomiting [None]
  - Nephrolithiasis [None]
  - Memory impairment [None]
  - Cerebrovascular accident [None]
  - Kidney infection [None]
  - Body temperature increased [None]
  - Vision blurred [None]

NARRATIVE: CASE EVENT DATE: 2013
